FAERS Safety Report 4386231-8 (Version None)
Quarter: 2004Q2

REPORT INFORMATION
  Report Type: 
  Country: None (occurrence: None)
  Receive Date: 20040628
  Receipt Date: 20040628
  Transmission Date: 20050107
  Serious: No
  Sender: FDA-Public Use
  Company Number: None

PATIENT
  Age: 51 Year
  Sex: Male
  Weight: 125 kg

DRUGS (1)
  1. CARIMUNE [Suspect]
     Indication: GUILLAIN-BARRE SYNDROME
     Dosage: 48G IV OVER 6 HRS
     Route: 042
     Dates: start: 20040606, end: 20040608

REACTIONS (1)
  - BLOOD CREATININE INCREASED [None]
